FAERS Safety Report 7602423-6 (Version None)
Quarter: 2011Q3

REPORT INFORMATION
  Report Type: 
  Country: None (occurrence: None)
  Receive Date: 20110712
  Receipt Date: 20110705
  Transmission Date: 20111222
  Serious: No
  Sender: FDA-Public Use
  Company Number: US-BIOGENIDEC-2011BI024875

PATIENT
  Age: 53 Year
  Sex: Female

DRUGS (5)
  1. TYSABRI [Suspect]
     Indication: MULTIPLE SCLEROSIS
     Route: 042
     Dates: start: 20110630
  2. ATIVAN [Concomitant]
     Indication: SLEEP DISORDER
  3. KLONOPIN [Concomitant]
     Indication: MUSCLE SPASMS
  4. FIORICET [Concomitant]
     Indication: HEADACHE
  5. KLONOPIN [Concomitant]
     Indication: BONE PAIN

REACTIONS (6)
  - FATIGUE [None]
  - VERTIGO [None]
  - PARAESTHESIA [None]
  - DYSGEUSIA [None]
  - BONE PAIN [None]
  - DECREASED APPETITE [None]
